FAERS Safety Report 22058875 (Version 1)
Quarter: 2023Q1

REPORT INFORMATION
  Report Type: Report from Study
  Country: BR (occurrence: BR)
  Receive Date: 20230303
  Receipt Date: 20230303
  Transmission Date: 20230417
  Serious: Yes (Other)
  Sender: FDA-Public Use
  Company Number: BR-JNJFOC-20211158579

PATIENT
  Age: 52 Year
  Sex: Female
  Weight: 60 kg

DRUGS (1)
  1. REMICADE [Suspect]
     Active Substance: INFLIXIMAB
     Indication: Crohn^s disease
     Dosage: 6 VIALS.
     Dates: start: 20160530, end: 20210304

REACTIONS (3)
  - Arrhythmia [Unknown]
  - Skin disorder [Unknown]
  - Malaise [Unknown]

NARRATIVE: CASE EVENT DATE: 20210301
